FAERS Safety Report 8382272-4 (Version None)
Quarter: 2012Q2

REPORT INFORMATION
  Report Type: 
  Country: None (occurrence: None)
  Receive Date: 20120524
  Receipt Date: 20120521
  Transmission Date: 20120825
  Serious: No
  Sender: FDA-Public Use
  Company Number: US-PFIZER INC-2012123293

PATIENT
  Sex: Male
  Weight: 27.211 kg

DRUGS (2)
  1. GENOTROPIN [Suspect]
     Indication: DWARFISM
     Dosage: 1.2 MG, DAILY
     Dates: start: 20120401, end: 20120501
  2. CONCERTA [Concomitant]
     Indication: ATTENTION DEFICIT/HYPERACTIVITY DISORDER
     Dosage: 36 MG, DAILY

REACTIONS (1)
  - ARTHROPOD INFESTATION [None]
